FAERS Safety Report 20175284 (Version 1)
Quarter: 2021Q4

REPORT INFORMATION
  Report Type: Spontaneous
  Country: US (occurrence: None)
  Receive Date: 20211210
  Receipt Date: 20211210
  Transmission Date: 20220303
  Serious: No
  Sender: FDA-Public Use
  Company Number: None

PATIENT
  Sex: Female
  Weight: 54.88 kg

DRUGS (14)
  1. INLYTA [Suspect]
     Active Substance: AXITINIB
     Indication: Renal cancer
     Dosage: FREQUENCY : TWICE A DAY;?
     Route: 048
  2. ONDANSETRON [Concomitant]
     Active Substance: ONDANSETRON
  3. CLOPIDOGREL [Concomitant]
     Active Substance: CLOPIDOGREL BISULFATE
  4. ENALAPRIL [Concomitant]
  5. SIMVASTATIN [Concomitant]
     Active Substance: SIMVASTATIN
  6. HYDROCODONE BITARTRATE AND ACETAMINOPHEN [Concomitant]
     Active Substance: ACETAMINOPHEN\HYDROCODONE BITARTRATE
  7. MORPHINE [Concomitant]
     Active Substance: MORPHINE
  8. OXYCODONE [Concomitant]
     Active Substance: OXYCODONE
  9. MIRTAZAPINE [Concomitant]
     Active Substance: MIRTAZAPINE
  10. ASPIRIN [Concomitant]
     Active Substance: ASPIRIN
  11. VENELEX [Concomitant]
     Active Substance: BALSAM PERU\CASTOR OIL
  12. LEVOTHYROXINE [Concomitant]
     Active Substance: LEVOTHYROXINE
  13. NITROGLYCERIN [Concomitant]
     Active Substance: NITROGLYCERIN
  14. PREDNISONE [Concomitant]
     Active Substance: PREDNISONE

REACTIONS (1)
  - Liver function test decreased [None]
